FAERS Safety Report 4622570-0 (Version None)
Quarter: 2005Q1

REPORT INFORMATION
  Report Type: 
  Country: None (occurrence: None)
  Receive Date: 20050325
  Receipt Date: 20050325
  Transmission Date: 20050727
  Serious: Yes (Hospitalization)
  Sender: FDA-Public Use
  Company Number: None

PATIENT
  Age: 71 Year
  Sex: Female
  Weight: 74.8435 kg

DRUGS (1)
  1. CRESTOR [Suspect]
     Indication: HYPERCHOLESTEROLAEMIA
     Dosage: 10MG   QD   ORAL
     Route: 048
     Dates: start: 20041101, end: 20041227

REACTIONS (3)
  - ARTHRALGIA [None]
  - CHEST DISCOMFORT [None]
  - PAIN IN EXTREMITY [None]
